FAERS Safety Report 7866971-6 (Version None)
Quarter: 2011Q4

REPORT INFORMATION
  Report Type: 
  Country: None (occurrence: None)
  Receive Date: 20111028
  Receipt Date: 20111017
  Transmission Date: 20120403
  Serious: Yes (Death, Hospitalization)
  Sender: FDA-Public Use
  Company Number: JP-ACTELION-A-CH2010-40454

PATIENT
  Sex: Male
  Weight: 57 kg

DRUGS (16)
  1. WARFARIN SODIUM [Concomitant]
  2. ASPIRIN [Concomitant]
  3. ALLOPURINOL [Concomitant]
  4. OXYGEN [Concomitant]
  5. LANSOPRAZOLE [Concomitant]
  6. TAMSULOSIN HYDROCHLORIDE [Concomitant]
  7. TULOBUTEROL [Concomitant]
  8. CLOPIDOGREL BISULFATE [Suspect]
     Dosage: UNK , UNK
     Dates: start: 20100711, end: 20100724
  9. SARPOGRELATE HYDROCHLORIDE [Concomitant]
  10. AZOSEMIDE [Concomitant]
  11. CILOSTAZOL [Concomitant]
  12. MAGNESIUM OXIDE [Concomitant]
  13. TRACLEER [Suspect]
     Indication: PULMONARY ARTERIAL HYPERTENSION
     Dosage: 125 MG, BID
     Route: 048
     Dates: start: 20100722, end: 20101214
  14. TRACLEER [Suspect]
     Dosage: 62.5 MG, BID
     Route: 048
     Dates: start: 20100617, end: 20100721
  15. CARBOCISTEINE [Concomitant]
  16. TIOPRONIN [Concomitant]

REACTIONS (21)
  - BLOOD BILIRUBIN INCREASED [None]
  - WEIGHT INCREASED [None]
  - DRUG INTERACTION [None]
  - ACUTE RESPIRATORY FAILURE [None]
  - CARDIAC ARREST [None]
  - DIARRHOEA [None]
  - HEPATITIS [None]
  - BLOOD ALKALINE PHOSPHATASE INCREASED [None]
  - GAMMA-GLUTAMYLTRANSFERASE INCREASED [None]
  - ASPARTATE AMINOTRANSFERASE INCREASED [None]
  - COUGH [None]
  - TACHYPNOEA [None]
  - OEDEMA PERIPHERAL [None]
  - ALANINE AMINOTRANSFERASE INCREASED [None]
  - HYPOPHAGIA [None]
  - INFLAMMATION [None]
  - RESPIRATORY ARREST [None]
  - LUNG INFECTION [None]
  - RESPIRATORY DISORDER [None]
  - PRODUCTIVE COUGH [None]
  - PYREXIA [None]
